FAERS Safety Report 17770928 (Version 1)
Quarter: 2020Q2

REPORT INFORMATION
  Report Type: Spontaneous
  Country: US (occurrence: US)
  Receive Date: 20200512
  Receipt Date: 20200512
  Transmission Date: 20200714
  Serious: Yes (Hospitalization)
  Sender: FDA-Public Use
  Company Number: US-B.BRAUN MEDICAL INC.-2083707

PATIENT
  Age: 56 Year
  Sex: Female

DRUGS (4)
  1. SOLU-MEDROL [Concomitant]
     Active Substance: METHYLPREDNISOLONE SODIUM SUCCINATE
     Route: 042
  2. BENADRYL [Concomitant]
     Active Substance: DIPHENHYDRAMINE HYDROCHLORIDE
     Route: 042
  3. SODIUM CHLORIDE INJECTION USP 0264-7800-09 [Suspect]
     Active Substance: SODIUM CHLORIDE
     Route: 042
  4. REMICADE [Concomitant]
     Active Substance: INFLIXIMAB

REACTIONS (3)
  - Dizziness [Recovered/Resolved]
  - Pyrexia [Recovered/Resolved]
  - Tremor [Recovered/Resolved]
